FAERS Safety Report 6478237-X (Version None)
Quarter: 2009Q4

REPORT INFORMATION
  Report Type: 
  Country: None (occurrence: None)
  Receive Date: 20091207
  Receipt Date: 20091126
  Transmission Date: 20100525
  Serious: Yes (Other)
  Sender: FDA-Public Use
  Company Number: AU-PFIZER INC-2007012793

PATIENT
  Age: 44 Year
  Sex: Female

DRUGS (2)
  1. XALACOM [Suspect]
     Indication: DEVELOPMENTAL GLAUCOMA
  2. XALATAN [Suspect]
     Indication: DEVELOPMENTAL GLAUCOMA

REACTIONS (6)
  - ALANINE AMINOTRANSFERASE INCREASED [None]
  - BLOOD ALKALINE PHOSPHATASE INCREASED [None]
  - GAMMA-GLUTAMYLTRANSFERASE INCREASED [None]
  - GLAUCOMA [None]
  - HAEMANGIOMA [None]
  - LIVER FUNCTION TEST ABNORMAL [None]
